FAERS Safety Report 23883938 (Version 1)
Quarter: 2024Q2

REPORT INFORMATION
  Report Type: Spontaneous
  Country: US (occurrence: None)
  Receive Date: 20240521
  Receipt Date: 20240521
  Transmission Date: 20240715
  Serious: Yes (Other)
  Sender: FDA-Public Use
  Company Number: None

PATIENT
  Age: 67 Year
  Sex: Male

DRUGS (2)
  1. POMALYST [Suspect]
     Active Substance: POMALIDOMIDE
     Indication: Plasma cell myeloma
     Dosage: FREQUENCY : DAILY;?
     Route: 048
     Dates: start: 20240304
  2. XARELTO [Suspect]
     Active Substance: RIVAROXABAN

REACTIONS (3)
  - Peripheral swelling [None]
  - Erythema [None]
  - Therapy interrupted [None]

NARRATIVE: CASE EVENT DATE: 20240517
